FAERS Safety Report 9204466 (Version 1)
Quarter: 2013Q1

REPORT INFORMATION
  Report Type: Spontaneous
  Country: CA (occurrence: None)
  Receive Date: 20130329
  Receipt Date: 20130329
  Transmission Date: 20140127
  Serious: Yes (Other)
  Sender: FDA-Public Use
  Company Number: 2013-098

PATIENT
  Age: 51 Year
  Sex: Female

DRUGS (2)
  1. CLOZAPINE [Suspect]
     Dosage: 150 MG, QD, ORAL
     Route: 048
  2. AMPICILLIN [Suspect]
     Dosage: 3000 MG, QD

REACTIONS (7)
  - Antipsychotic drug level increased [None]
  - Incoherent [None]
  - Aphasia [None]
  - Akinesia [None]
  - Ataxia [None]
  - Infection [None]
  - Drug interaction [None]
